FAERS Safety Report 7402715-X (Version None)
Quarter: 2011Q2

REPORT INFORMATION
  Report Type: 
  Country: None (occurrence: None)
  Receive Date: 20110408
  Receipt Date: 20110404
  Transmission Date: 20111010
  Serious: Yes (Hospitalization)
  Sender: FDA-Public Use
  Company Number: US-ROCHE-758113

PATIENT
  Age: 69 Year
  Sex: Female

DRUGS (4)
  1. TRASTUZUMAB [Suspect]
     Dosage: LOADING DOSE
     Route: 042
  2. CARBOPLATIN [Suspect]
     Dosage: DOSE: AUC6
     Route: 042
     Dates: start: 20101124
  3. TRASTUZUMAB [Suspect]
     Route: 042
     Dates: start: 20101124
  4. DOCETAXEL [Suspect]
     Route: 042
     Dates: start: 20101124

REACTIONS (9)
  - BLOOD CREATININE INCREASED [None]
  - GRANULOCYTE COUNT DECREASED [None]
  - SYNCOPE [None]
  - DIARRHOEA [None]
  - DEHYDRATION [None]
  - NEUTROPHIL COUNT DECREASED [None]
  - INFECTION [None]
  - HAEMOGLOBIN [None]
  - HAEMOGLOBIN DECREASED [None]
